FAERS Safety Report 5279509-7 (Version None)
Quarter: 2007Q1

REPORT INFORMATION
  Report Type: 
  Country: None (occurrence: None)
  Receive Date: 20070328
  Receipt Date: 20070316
  Transmission Date: 20070707
  Serious: Yes (Other)
  Sender: FDA-Public Use
  Company Number: DE-PFIZER INC-2006116917

PATIENT
  Sex: Male

DRUGS (1)
  1. ZELDOX (CAPSULES) [Suspect]
     Indication: PSYCHOTIC DISORDER
     Route: 048

REACTIONS (4)
  - DIZZINESS [None]
  - INTENTIONAL OVERDOSE [None]
  - SOMNOLENCE [None]
  - SUICIDE ATTEMPT [None]
